FAERS Safety Report 6651865-4 (Version None)
Quarter: 2010Q1

REPORT INFORMATION
  Report Type: 
  Country: None (occurrence: None)
  Receive Date: 20100323
  Receipt Date: 20100308
  Transmission Date: 20100710
  Serious: Yes (Death, Hospitalization)
  Sender: FDA-Public Use
  Company Number: 2007002190

PATIENT
  Age: 82 Year
  Sex: Male

DRUGS (6)
  1. ERLOTINIB                       (TABLET)          (ERLOTINIB) [Suspect]
     Indication: NON-SMALL CELL LUNG CANCER
     Dosage: ORAL
     Route: 048
     Dates: start: 20070616, end: 20070621
  2. MORPHINE SULFATE [Concomitant]
  3. DICLOFENAC SODIUM [Concomitant]
  4. ASPIRIN [Concomitant]
  5. SIMVASTATIN [Concomitant]
  6. ALLOPURINOL [Concomitant]

REACTIONS (2)
  - DIARRHOEA [None]
  - NON-SMALL CELL LUNG CANCER METASTATIC [None]
